FAERS Safety Report 12186789 (Version 4)
Quarter: 2016Q3

REPORT INFORMATION
  Report Type: Spontaneous
  Country: US (occurrence: US)
  Receive Date: 20160317
  Receipt Date: 20160922
  Transmission Date: 20161109
  Serious: Yes (Death, Hospitalization)
  Sender: FDA-Public Use
  Company Number: US-PFIZER INC-2016143718

PATIENT
  Age: 67 Year
  Sex: Male
  Weight: 74.4 kg

DRUGS (5)
  1. HYDROCHLOROTHIAZIDE. [Concomitant]
     Active Substance: HYDROCHLOROTHIAZIDE
     Dosage: UNK
  2. SYNTHROID [Concomitant]
     Active Substance: LEVOTHYROXINE SODIUM
     Dosage: UNK
  3. XALKORI [Suspect]
     Active Substance: CRIZOTINIB
     Indication: ADENOCARCINOMA
     Dosage: 250 MG, 2X/DAY
     Route: 048
     Dates: start: 20160211
  4. ALLOPURINOL. [Concomitant]
     Active Substance: ALLOPURINOL
     Dosage: UNK
  5. XALKORI [Suspect]
     Active Substance: CRIZOTINIB
     Indication: LUNG NEOPLASM MALIGNANT
     Dosage: 250 MG, DAILY
     Route: 048
     Dates: start: 20160209

REACTIONS (8)
  - Oedema peripheral [Unknown]
  - Weight decreased [Unknown]
  - Hypotension [Unknown]
  - Pain in extremity [Unknown]
  - Constipation [Unknown]
  - Death [Fatal]
  - Decreased appetite [Unknown]
  - Sciatica [Unknown]

NARRATIVE: CASE EVENT DATE: 2016
